FAERS Safety Report 12156006 (Version 2)
Quarter: 2016Q2

REPORT INFORMATION
  Report Type: Report from Study
  Country: US (occurrence: US)
  Receive Date: 20160307
  Receipt Date: 20160401
  Transmission Date: 20160815
  Serious: Yes (Other)
  Sender: FDA-Public Use
  Company Number: PHHO2016US003272

PATIENT
  Age: 9 Year
  Sex: Female
  Weight: 47 kg

DRUGS (4)
  1. ELTROMBOPAG [Suspect]
     Active Substance: ELTROMBOPAG
     Indication: IMMUNE THROMBOCYTOPENIC PURPURA
     Dosage: 75 MG, FOUR TIMES IN A WEEK
     Route: 065
     Dates: start: 20150929
  2. VITAMIIN C [Concomitant]
     Active Substance: ASCORBIC ACID
     Indication: PRODUCT USED FOR UNKNOWN INDICATION
     Dosage: UNK
     Route: 065
  3. PREDNISONE. [Concomitant]
     Active Substance: PREDNISONE
     Indication: PRODUCT USED FOR UNKNOWN INDICATION
     Dosage: 5 MG, QD
  4. ELTROMBOPAG [Suspect]
     Active Substance: ELTROMBOPAG
     Dosage: 150 MG, THIRCE IN A WEEK
     Route: 065
     Dates: end: 20151229

REACTIONS (1)
  - Precocious puberty [Recovering/Resolving]

NARRATIVE: CASE EVENT DATE: 20151215
